FAERS Safety Report 21991771 (Version 1)
Quarter: 2023Q1

REPORT INFORMATION
  Report Type: Spontaneous
  Country: BR (occurrence: BR)
  Receive Date: 20230214
  Receipt Date: 20230214
  Transmission Date: 20230418
  Serious: Yes (Life-Threatening, Hospitalization, Other)
  Sender: FDA-Public Use
  Company Number: BR-009507513-2302BRA002729

PATIENT
  Age: 75 Year
  Sex: Male
  Weight: 68 kg

DRUGS (2)
  1. INVANZ [Suspect]
     Active Substance: ERTAPENEM SODIUM
     Indication: Antibiotic therapy
     Dosage: 1 GRAM, QD
     Route: 042
     Dates: start: 20230126, end: 20230127
  2. PHENYTOIN SODIUM [Suspect]
     Active Substance: PHENYTOIN SODIUM
     Dosage: 200 MG IN THE MORNING AND 250 MG AT NIGHT
     Route: 048

REACTIONS (3)
  - Seizure [Recovered/Resolved]
  - Partial seizures [Recovered/Resolved]
  - Convulsive threshold lowered [Recovered/Resolved]

NARRATIVE: CASE EVENT DATE: 20230128
